FAERS Safety Report 5494955-4 (Version None)
Quarter: 2007Q4

REPORT INFORMATION
  Report Type: 
  Country: None (occurrence: None)
  Receive Date: 20071024
  Receipt Date: 20071018
  Transmission Date: 20080405
  Serious: Yes (Hospitalization)
  Sender: FDA-Public Use
  Company Number: B0486528A

PATIENT
  Age: 65 Year
  Sex: Female
  Weight: 50 kg

DRUGS (1)
  1. VALTREX [Suspect]
     Indication: HERPES ZOSTER
     Dosage: 1000MG THREE TIMES PER DAY
     Route: 048
     Dates: start: 20070824, end: 20070828

REACTIONS (3)
  - MALAISE [None]
  - PAIN [None]
  - RENAL IMPAIRMENT [None]
